FAERS Safety Report 10179274 (Version 2)
Quarter: 2014Q4

REPORT INFORMATION
  Report Type: Spontaneous
  Country: FR (occurrence: None)
  Receive Date: 20140516
  Receipt Date: 20141027
  Transmission Date: 20150528
  Serious: Yes (Hospitalization)
  Sender: FDA-Public Use
  Company Number: FRA-CLT-2012161

PATIENT
  Age: 24 Year
  Sex: Female

DRUGS (9)
  1. VITAMIN B12 [Concomitant]
     Active Substance: CYANOCOBALAMIN
  2. VITAMIN C [Concomitant]
     Active Substance: ASCORBIC ACID
  3. CYSTADANE [Suspect]
     Active Substance: BETAINE
     Indication: HOMOCYSTINURIA
     Dosage: 6 G EVERY DAY, ORAL
     Route: 048
     Dates: start: 200503, end: 20090918
  4. FOLIC ACID. [Concomitant]
     Active Substance: FOLIC ACID
  5. CYSTINE B6 -L-CYSTINE [Concomitant]
  6. VITAMIN B6 [Concomitant]
     Active Substance: PYRIDOXINE HYDROCHLORIDE
  7. CALCIT D3 -VITAMIN D [Concomitant]
  8. HCV EXPRESS [Concomitant]
  9. SPECIAFOLDINE -FOLIC ACID [Concomitant]

REACTIONS (1)
  - Pulmonary embolism [None]

NARRATIVE: CASE EVENT DATE: 20100131
